FAERS Safety Report 8844061 (Version 2)
Quarter: 2013Q1

REPORT INFORMATION
  Report Type: Spontaneous
  Country: US (occurrence: US)
  Receive Date: 20121017
  Receipt Date: 20130119
  Transmission Date: 20140127
  Serious: No
  Sender: FDA-Public Use
  Company Number: US-009507513-1210USA006075

PATIENT
  Age: 70 Year
  Sex: Female

DRUGS (1)
  1. NASONEX [Suspect]
     Indication: SEASONAL ALLERGY
     Dosage: 1 TO 2 SPRAYS IN EACH NOSTRIL, PRN
     Route: 045
     Dates: start: 2010

REACTIONS (5)
  - Sinusitis [Recovering/Resolving]
  - Ear discomfort [Recovering/Resolving]
  - Oropharyngeal pain [Recovering/Resolving]
  - Drug dose omission [Unknown]
  - Product quality issue [Unknown]
